FAERS Safety Report 14613722 (Version 1)
Quarter: 2018Q1

REPORT INFORMATION
  Report Type: Spontaneous
  Country: FR (occurrence: FR)
  Receive Date: 20180308
  Receipt Date: 20180308
  Transmission Date: 20180509
  Serious: Yes (Other)
  Sender: FDA-Public Use
  Company Number: FR-MERCK KGAA-2043306

PATIENT
  Age: 52 Year
  Sex: Female

DRUGS (1)
  1. NOVOTHYROX [Suspect]
     Active Substance: LEVOTHYROXINE SODIUM
     Indication: THYROIDECTOMY
     Dates: start: 201704

REACTIONS (19)
  - Irritability [None]
  - Marital problem [None]
  - Overdose [None]
  - Insomnia [None]
  - Depression [Not Recovered/Not Resolved]
  - Dizziness [None]
  - Impaired driving ability [None]
  - Affective disorder [None]
  - Epicondylitis [Recovering/Resolving]
  - Hyperthyroidism [None]
  - Myalgia [None]
  - Pain in extremity [None]
  - Loss of personal independence in daily activities [None]
  - Hot flush [None]
  - Hypokinesia [None]
  - Night sweats [None]
  - Musculoskeletal pain [None]
  - Weight increased [None]
  - Palpitations [None]

NARRATIVE: CASE EVENT DATE: 2017
